FAERS Safety Report 18329230 (Version 10)
Quarter: 2023Q1

REPORT INFORMATION
  Report Type: Report from Study
  Country: IL (occurrence: IL)
  Receive Date: 20200930
  Receipt Date: 20230329
  Transmission Date: 20230417
  Serious: Yes (Death, Hospitalization, Other)
  Sender: FDA-Public Use
  Company Number: IL-ABBVIE-20K-082-3585056-00

PATIENT
  Age: 81 Year
  Sex: Male
  Weight: 77 kg

DRUGS (15)
  1. VENCLEXTA [Suspect]
     Active Substance: VENETOCLAX
     Indication: Chronic lymphocytic leukaemia
     Route: 048
     Dates: start: 20200720, end: 20200721
  2. VENCLEXTA [Suspect]
     Active Substance: VENETOCLAX
     Indication: Chronic lymphocytic leukaemia
     Route: 048
     Dates: start: 20200725, end: 20200725
  3. VENCLEXTA [Suspect]
     Active Substance: VENETOCLAX
     Indication: Chronic lymphocytic leukaemia
     Dosage: 100 MILLIGRAM
     Route: 048
     Dates: start: 20200806, end: 20200808
  4. VENCLEXTA [Suspect]
     Active Substance: VENETOCLAX
     Indication: Chronic lymphocytic leukaemia
     Dosage: 400 MILLIGRAM
     Route: 048
     Dates: start: 20200810, end: 20201028
  5. VENCLEXTA [Suspect]
     Active Substance: VENETOCLAX
     Indication: Chronic lymphocytic leukaemia
     Dosage: 400 MILLIGRAM
     Route: 048
     Dates: start: 20200730, end: 20200805
  6. VENCLEXTA [Suspect]
     Active Substance: VENETOCLAX
     Indication: Chronic lymphocytic leukaemia
     Dosage: 0 MG
     Route: 048
     Dates: start: 20200724, end: 20200724
  7. VENCLEXTA [Suspect]
     Active Substance: VENETOCLAX
     Indication: Chronic lymphocytic leukaemia
     Dosage: 200 MILLIGRAM
     Route: 048
     Dates: start: 20200809, end: 20200809
  8. ALLOPURINOL [Concomitant]
     Active Substance: ALLOPURINOL
     Indication: Prophylaxis
     Dates: start: 20200720
  9. AMLODIPINE MALEATE [Concomitant]
     Active Substance: AMLODIPINE MALEATE
     Indication: Hypertension
  10. PREDNISONE [Concomitant]
     Active Substance: PREDNISONE
     Indication: Supportive care
     Dates: start: 20200716
  11. ENOXAPARIN SODIUM [Concomitant]
     Active Substance: ENOXAPARIN SODIUM
     Indication: Supportive care
     Dates: start: 20200725, end: 20200731
  12. LOSEC [Concomitant]
     Active Substance: OMEPRAZOLE
     Indication: Supportive care
     Dates: start: 20200724
  13. SEROQUEL [Concomitant]
     Active Substance: QUETIAPINE FUMARATE
     Indication: Anxiety
     Dates: start: 20200723
  14. LEVOFLOXACIN [Concomitant]
     Active Substance: LEVOFLOXACIN
     Indication: Pneumonia
     Dates: start: 20200723, end: 20200729
  15. MABTHERA [Suspect]
     Active Substance: RITUXIMAB
     Indication: Antiangiogenic therapy
     Route: 065

REACTIONS (9)
  - Disease progression [Fatal]
  - Sepsis [Recovered/Resolved]
  - Tumour lysis syndrome [Recovered/Resolved]
  - Postoperative wound infection [Recovered/Resolved]
  - Disease progression [Unknown]
  - Cerebral haemorrhage [Fatal]
  - Oedema peripheral [Recovered/Resolved]
  - Neutropenia [Recovered/Resolved]
  - Anaemia [Recovered/Resolved]

NARRATIVE: CASE EVENT DATE: 20200723
